FAERS Safety Report 7497469-5 (Version None)
Quarter: 2011Q2

REPORT INFORMATION
  Report Type: 
  Country: None (occurrence: None)
  Receive Date: 20110523
  Receipt Date: 20110510
  Transmission Date: 20111010
  Serious: Yes (Hospitalization)
  Sender: FDA-Public Use
  Company Number: US-ELI_LILLY_AND_COMPANY-US200908005723

PATIENT
  Sex: Female

DRUGS (12)
  1. ASPIRIN [Concomitant]
  2. MULTI-VITAMIN [Concomitant]
  3. SYNTHROID [Concomitant]
  4. RESTASIS [Concomitant]
  5. FORTEO [Suspect]
     Indication: OSTEOPOROSIS
     Dosage: 20 UG, QD
     Route: 058
     Dates: start: 20090731
  6. PRILOSEC [Concomitant]
  7. ENSURE                             /06184901/ [Concomitant]
  8. DITROPAN [Concomitant]
  9. COLACE [Concomitant]
  10. LEXAPRO [Concomitant]
  11. NORVASC [Concomitant]
  12. PRAVASTATIN [Concomitant]

REACTIONS (2)
  - SACROILIITIS [None]
  - LUMBAR RADICULOPATHY [None]
